FAERS Safety Report 9910387 (Version 1)
Quarter: 2014Q1

REPORT INFORMATION
  Report Type: Spontaneous
  Country: FR (occurrence: FR)
  Receive Date: 20140219
  Receipt Date: 20140219
  Transmission Date: 20141002
  Serious: Yes (Other)
  Sender: FDA-Public Use
  Company Number: FR-PFIZER INC-2014043685

PATIENT
  Age: 39 Year
  Sex: Female

DRUGS (5)
  1. TRIATEC [Suspect]
     Dosage: UNK
     Route: 048
     Dates: start: 20140127, end: 20140203
  2. ALDACTONE [Concomitant]
     Dosage: UNK
     Dates: start: 20140128
  3. AMLOR [Concomitant]
     Dosage: UNK
     Dates: start: 20140128
  4. CORDARONE [Concomitant]
     Dosage: UNK
     Dates: start: 20140128
  5. LASILIX [Concomitant]
     Dosage: UNK
     Dates: start: 20140129

REACTIONS (2)
  - Angioedema [Recovering/Resolving]
  - Pruritus [Recovered/Resolved]
